FAERS Safety Report 4322997-0 (Version None)
Quarter: 2004Q1

REPORT INFORMATION
  Report Type: 
  Country: None (occurrence: None)
  Receive Date: 20040322
  Receipt Date: 20040310
  Transmission Date: 20041129
  Serious: Yes (Disabling)
  Sender: FDA-Public Use
  Company Number: MK200403-0110-1

PATIENT
  Age: 60 Year
  Sex: Female

DRUGS (2)
  1. ANAFRANIL [Suspect]
     Indication: DEPRESSION
     Dosage: 10MG
     Dates: start: 19830615, end: 20040119
  2. PIZOTIFEN [Concomitant]

REACTIONS (1)
  - PARKINSON'S DISEASE [None]
